FAERS Safety Report 9779224 (Version 1)
Quarter: 2013Q4

REPORT INFORMATION
  Report Type: Report from Study
  Country: DE (occurrence: DE)
  Receive Date: 20131223
  Receipt Date: 20131223
  Transmission Date: 20140711
  Serious: Yes (Hospitalization)
  Sender: FDA-Public Use
  Company Number: PHHO2013DE016450

PATIENT
  Sex: 0

DRUGS (5)
  1. EXELON [Suspect]
     Indication: PROGRESSIVE SUPRANUCLEAR PALSY
     Route: 048
  2. DIOVAN [Concomitant]
     Indication: HYPERTENSION
     Dosage: 80, QD
     Route: 048
  3. PK MERZ [Concomitant]
     Indication: PROGRESSIVE SUPRANUCLEAR PALSY
     Dosage: 200
     Route: 048
  4. METOPROLOL [Concomitant]
     Indication: HYPERTENSION
     Dosage: 50
     Route: 048
  5. NIFICAL [Concomitant]
     Dosage: UNK
     Route: 048

REACTIONS (1)
  - Femoral neck fracture [Recovering/Resolving]
